FAERS Safety Report 11228042 (Version 1)
Quarter: 2015Q2

REPORT INFORMATION
  Report Type: Spontaneous
  Country: PT (occurrence: PT)
  Receive Date: 20150630
  Receipt Date: 20150630
  Transmission Date: 20150821
  Serious: Yes (Other)
  Sender: FDA-Public Use
  Company Number: PT-BRISTOL-MYERS SQUIBB COMPANY-BMS-2015-042856

PATIENT
  Age: 40 Year
  Sex: Female

DRUGS (10)
  1. FUCUS VESICULOSUS [Suspect]
     Active Substance: FUCUS VESICULOSUS
     Indication: OBESITY
     Dosage: UNK
     Route: 065
     Dates: start: 201305, end: 201408
  2. DIAZEPAM. [Suspect]
     Active Substance: DIAZEPAM
     Indication: OBESITY
     Dosage: UNK
     Route: 065
     Dates: start: 201305, end: 201408
  3. BILBERRY /01397601/ [Suspect]
     Active Substance: BILBERRY
     Indication: OBESITY
     Dosage: UNK
     Route: 065
     Dates: start: 201305, end: 201408
  4. CENTELLA EXTRACT [Suspect]
     Active Substance: CENTELLA ASIATICA
     Indication: OBESITY
     Route: 065
  5. LEVOTHYROXINE [Suspect]
     Active Substance: LEVOTHYROXINE
     Indication: OBESITY
     Dosage: UNK
     Route: 065
     Dates: start: 201305, end: 201408
  6. CHLORDIAZEPOXIDE [Suspect]
     Active Substance: CHLORDIAZEPOXIDE
     Indication: OBESITY
     Dosage: UNK
     Route: 065
     Dates: start: 201305, end: 201408
  7. EQUISETUM ARVENSE [Suspect]
     Active Substance: EQUISETUM ARVENSE TOP
     Indication: OBESITY
     Dosage: UNK
     Route: 065
     Dates: start: 201305, end: 201408
  8. CASCARA SAGRADA /00143201/ [Suspect]
     Active Substance: FRANGULA PURSHIANA BARK
     Indication: OBESITY
     Route: 065
  9. METFORMIN HYDROCHLORIDE. [Suspect]
     Active Substance: METFORMIN HYDROCHLORIDE
     Indication: OBESITY
     Dosage: UNK
     Route: 065
     Dates: start: 201305, end: 201408
  10. VITAMIN A                          /00056001/ [Suspect]
     Active Substance: RETINOL
     Indication: OBESITY
     Dosage: UNK
     Route: 065
     Dates: start: 201305, end: 201408

REACTIONS (6)
  - Drug intolerance [Unknown]
  - Off label use [Recovered/Resolved]
  - Pernicious anaemia [Unknown]
  - Drug abuse [Unknown]
  - Colitis microscopic [Unknown]
  - Acute prerenal failure [Unknown]
